FAERS Safety Report 18530733 (Version 1)
Quarter: 2020Q4

REPORT INFORMATION
  Report Type: Spontaneous
  Country: RU (occurrence: RU)
  Receive Date: 20201121
  Receipt Date: 20201121
  Transmission Date: 20210114
  Serious: Yes (Other)
  Sender: FDA-Public Use
  Company Number: NVSC2020RU304388

PATIENT
  Age: 4 Year
  Sex: Female
  Weight: 13 kg

DRUGS (2)
  1. KREON [Concomitant]
     Active Substance: PANCRELIPASE
     Indication: PRODUCT USED FOR UNKNOWN INDICATION
     Dosage: 5000 IU, BID
     Route: 048
     Dates: start: 20181228
  2. ZARZIO [Suspect]
     Active Substance: FILGRASTIM
     Indication: SHWACHMAN-DIAMOND SYNDROME
     Dosage: 12000000 IU, QD
     Route: 058
     Dates: start: 20181029, end: 20201029

REACTIONS (1)
  - Circulatory collapse [Recovered/Resolved with Sequelae]

NARRATIVE: CASE EVENT DATE: 20201029
